FAERS Safety Report 24188461 (Version 1)
Quarter: 2024Q3

REPORT INFORMATION
  Report Type: Spontaneous
  Country: US (occurrence: US)
  Receive Date: 20240808
  Receipt Date: 20240808
  Transmission Date: 20241017
  Serious: No
  Sender: OTSUKA
  Company Number: US-OTSUKA-2023_029575

PATIENT
  Sex: Female
  Weight: 89.81 kg

DRUGS (1)
  1. ABILIFY [Suspect]
     Active Substance: ARIPIPRAZOLE
     Indication: Thinking abnormal
     Dosage: UNK
     Route: 065
     Dates: start: 202308, end: 20230928

REACTIONS (2)
  - Akathisia [Not Recovered/Not Resolved]
  - Drug ineffective for unapproved indication [Unknown]
